FAERS Safety Report 23951370 (Version 3)
Quarter: 2024Q3

REPORT INFORMATION
  Report Type: Spontaneous
  Country: GB (occurrence: GB)
  Receive Date: 20240607
  Receipt Date: 20240828
  Transmission Date: 20241017
  Serious: Yes (Death, Hospitalization, Other)
  Sender: MYLAN
  Company Number: GB-MYLANLABS-2024M1050839

PATIENT
  Sex: Male

DRUGS (14)
  1. CLOZARIL [Suspect]
     Active Substance: CLOZAPINE
     Indication: Schizophrenia
     Dosage: 100 MILLIGRAM, AM (IN THE MORNING)(STOP DATE: AROUND 08-MAY-2024)
     Route: 048
     Dates: start: 20170908, end: 202405
  2. CLOZARIL [Suspect]
     Active Substance: CLOZAPINE
     Dosage: 200 MILLIGRAM, PM (AT NIGHT)
     Route: 048
     Dates: start: 202405, end: 20240523
  3. CLOZARIL [Suspect]
     Active Substance: CLOZAPINE
     Dosage: 150 MILLIGRAM, QD (50MG MORNING AND 100MG NIGHT)
     Route: 048
     Dates: start: 20240611
  4. ATORVASTATIN [Concomitant]
     Active Substance: ATORVASTATIN
     Indication: Hypercholesterolaemia
     Dosage: 20 MILLIGRAM, PM (AT NIGHT)
     Route: 048
     Dates: start: 20231107
  5. CETIRIZINE [Concomitant]
     Active Substance: CETIRIZINE HYDROCHLORIDE
     Indication: Seasonal allergy
     Dosage: 10 MILLIGRAM, QD (ONCE DAILY)
     Route: 048
     Dates: start: 20170623
  6. CARBIDOPA\LEVODOPA [Concomitant]
     Active Substance: CARBIDOPA\LEVODOPA
     Indication: Parkinson^s disease
     Dosage: 1 DOSAGE FORM, TID
     Route: 048
     Dates: start: 20170313
  7. DESMOPRESSIN [Concomitant]
     Active Substance: DESMOPRESSIN
     Indication: Diabetes insipidus
     Dosage: 0.5 DOSAGE FORM, BID
     Route: 048
     Dates: start: 20220512
  8. EPILIM [Concomitant]
     Active Substance: VALPROATE SODIUM
     Indication: Bipolar disorder
     Dosage: 300 MILLIGRAM, QD (ONCE DAILY)
     Route: 048
     Dates: start: 20200618
  9. EPILIM [Concomitant]
     Active Substance: VALPROATE SODIUM
     Dosage: 500 MILLIGRAM, QD (ONCE DAILY)
     Route: 048
  10. FERROUS FUMARATE [Concomitant]
     Active Substance: FERROUS FUMARATE
     Indication: Iron deficiency
     Dosage: 210 MILLIGRAM, QD (ONCE DAILY)
     Route: 048
     Dates: start: 20090615
  11. FOLIC ACID [Concomitant]
     Active Substance: FOLIC ACID
     Indication: Blood folate decreased
     Dosage: 5 MILLIGRAM, QD (ONCE DAILY)
     Route: 048
     Dates: start: 20200611
  12. KEMADRIN [Concomitant]
     Active Substance: PROCYCLIDINE HYDROCHLORIDE
     Indication: Antipsychotic therapy
     Dosage: 5 MILLIGRAM, BID (ONE AT BREAKFAST AND TEATIME))
     Route: 048
     Dates: start: 20130708
  13. OMEPRAZOLE [Concomitant]
     Active Substance: OMEPRAZOLE
     Indication: Reflux gastritis
     Dosage: 20 MILLIGRAM, QD (ONCE DAILY)
     Route: 048
     Dates: start: 20110709
  14. LITHIUM [Concomitant]
     Active Substance: LITHIUM
     Indication: Bipolar disorder
     Dosage: 400 MILLIGRAM, PM (AT NIGHT)
     Route: 048
     Dates: start: 20170313

REACTIONS (5)
  - Parkinson^s disease [Fatal]
  - Hospitalisation [Recovered/Resolved]
  - Electrocardiogram QT prolonged [Unknown]
  - Pneumonia aspiration [Unknown]
  - General physical health deterioration [Unknown]

NARRATIVE: CASE EVENT DATE: 20240501
